FAERS Safety Report 8218850-2 (Version None)
Quarter: 2012Q1

REPORT INFORMATION
  Report Type: 
  Country: None (occurrence: None)
  Receive Date: 20120319
  Receipt Date: 20120314
  Transmission Date: 20120608
  Serious: Yes (Hospitalization)
  Sender: FDA-Public Use
  Company Number: PHEH2011US012048

PATIENT
  Sex: Male

DRUGS (2)
  1. EXJADE [Suspect]
     Indication: NEOPLASM
     Dosage: 500 MG, QID
     Route: 048
     Dates: start: 20111014, end: 20111201
  2. CHEMOTHERAPEUTICS NOS [Concomitant]

REACTIONS (2)
  - LEUKAEMIA [None]
  - MYELODYSPLASTIC SYNDROME TRANSFORMATION [None]
